FAERS Safety Report 12861696 (Version 3)
Quarter: 2016Q4

REPORT INFORMATION
  Report Type: Spontaneous
  Country: US (occurrence: US)
  Receive Date: 20161019
  Receipt Date: 20161222
  Transmission Date: 20170207
  Serious: No
  Sender: FDA-Public Use
  Company Number: US-PFIZER INC-2016487599

PATIENT
  Age: 73 Year
  Sex: Female
  Weight: 58 kg

DRUGS (1)
  1. IBRANCE [Suspect]
     Active Substance: PALBOCICLIB
     Indication: BREAST CANCER METASTATIC
     Dosage: 100 MG, CYCLIC (DAY 1-21 Q 21 DAYS)
     Route: 048
     Dates: start: 20160821, end: 201611

REACTIONS (5)
  - Neoplasm progression [Unknown]
  - Fatigue [Unknown]
  - Decreased appetite [Unknown]
  - Ageusia [Unknown]
  - Pain [Unknown]
